FAERS Safety Report 10195903 (Version 6)
Quarter: 2018Q2

REPORT INFORMATION
  Report Type: Report from Study
  Country: DE (occurrence: DE)
  Receive Date: 20140527
  Receipt Date: 20180626
  Transmission Date: 20180711
  Serious: Yes (Hospitalization, Other)
  Sender: FDA-Public Use
  Company Number: DE-ALEXION PHARMACEUTICALS INC.-A201302635

PATIENT
  Age: 8 Year
  Sex: Male
  Weight: 34 kg

DRUGS (23)
  1. ECULIZUMAB [Suspect]
     Active Substance: ECULIZUMAB
     Dosage: 600 MG, Q2W
     Route: 042
     Dates: start: 20140320
  2. RESONIUM [Concomitant]
     Active Substance: SODIUM POLYSTYRENE SULFONATE
     Indication: PROPHYLAXIS
     Dosage: 100 MG, UNK
     Route: 048
     Dates: start: 20150928, end: 20160610
  3. ALPHA                              /00454801/ [Concomitant]
     Indication: CHRONIC KIDNEY DISEASE-MINERAL AND BONE DISORDER
     Dosage: 2 ?G, UNK
     Route: 048
     Dates: start: 20141128
  4. ALPHA                              /00454801/ [Concomitant]
     Dosage: 15 DROPS, UNK
     Route: 048
  5. SAIZEN [Concomitant]
     Active Substance: SOMATROPIN
     Indication: GROWTH RETARDATION
     Dosage: 1.2 MG, SINGLE (EVERY OTHER NIGHT)
     Route: 058
     Dates: start: 20121101, end: 20150928
  6. SAIZEN [Concomitant]
     Active Substance: SOMATROPIN
     Indication: CHRONIC KIDNEY DISEASE-MINERAL AND BONE DISORDER
     Dosage: 1.75 MG, UNK
     Route: 058
     Dates: start: 20150928, end: 20161115
  7. THIAMINE. [Concomitant]
     Active Substance: THIAMINE
     Indication: PRODUCT USED FOR UNKNOWN INDICATION
     Dosage: 200 MG, SINGLE
     Route: 048
  8. PHOSPHATE                          /01318702/ [Concomitant]
     Active Substance: SODIUM PHOSPHATE
     Indication: PRODUCT USED FOR UNKNOWN INDICATION
     Dosage: UNK
     Route: 065
  9. OTRIVEN [Concomitant]
     Active Substance: XYLOMETAZOLINE HYDROCHLORIDE
     Indication: PRODUCT USED FOR UNKNOWN INDICATION
     Dosage: UNK, TID
     Route: 045
  10. ALPHA                              /00454801/ [Concomitant]
     Indication: PROPHYLAXIS
     Dosage: 0.5 ?G, SINGLE
     Route: 048
     Dates: start: 20130808, end: 20141128
  11. ARANESP [Concomitant]
     Active Substance: DARBEPOETIN ALFA
     Indication: NEPHROGENIC ANAEMIA
     Dosage: 300 ?G, Q2W
     Route: 042
     Dates: start: 20121001, end: 20150501
  12. RENVELA [Concomitant]
     Active Substance: SEVELAMER CARBONATE
     Indication: HYPERPHOSPHATAEMIA
     Dosage: 600 MG, SINGLE
     Route: 048
     Dates: start: 20130501, end: 20150928
  13. ALPHA                              /00454801/ [Concomitant]
     Indication: HYPERPARATHYROIDISM
     Dosage: 2 ?G, SINGLE
     Route: 048
     Dates: start: 20130101, end: 20130807
  14. ARANESP [Concomitant]
     Active Substance: DARBEPOETIN ALFA
     Dosage: 150 ?G, UNK
     Route: 065
  15. VITARENAL [Concomitant]
     Indication: PROPHYLAXIS
     Dosage: UNK
     Route: 048
     Dates: start: 20150626
  16. VIGANTOLETTEN [Concomitant]
     Active Substance: CHOLECALCIFEROL
     Indication: PRODUCT USED FOR UNKNOWN INDICATION
     Dosage: 1000 IU, UNK
     Route: 065
  17. VIGANTOLETTEN [Concomitant]
     Active Substance: CHOLECALCIFEROL
     Dosage: 1.2 MG, UNK
     Route: 058
  18. BIOCARN [Concomitant]
     Indication: PROPHYLAXIS
     Dosage: 300 MG, SINGLE
     Route: 048
     Dates: start: 20120601
  19. BIOCARN [Concomitant]
     Dosage: 1 ML, SINGLE
     Route: 048
  20. ECULIZUMAB [Suspect]
     Active Substance: ECULIZUMAB
     Indication: ATYPICAL HAEMOLYTIC URAEMIC SYNDROME
     Dosage: 600 MG, Q2W
     Route: 042
     Dates: start: 20120504, end: 20120727
  21. RENVELA [Concomitant]
     Active Substance: SEVELAMER CARBONATE
     Dosage: 2.4 G, UNK
     Route: 048
     Dates: start: 20150928, end: 20160610
  22. MIRCERA [Concomitant]
     Active Substance: METHOXY POLYETHYLENE GLYCOL-EPOETIN BETA
     Indication: NEPHROGENIC ANAEMIA
     Dosage: 200 ?G, UNK
     Route: 042
     Dates: start: 20150515
  23. PEPTISORB [Concomitant]
     Indication: PRODUCT USED FOR UNKNOWN INDICATION
     Dosage: 500 ML, NIGHTLY
     Route: 065

REACTIONS (5)
  - Epidermolysis [Unknown]
  - Drug ineffective [Unknown]
  - Bacterial sepsis [Recovered/Resolved]
  - Device related infection [Recovered/Resolved]
  - Herpes simplex [Unknown]

NARRATIVE: CASE EVENT DATE: 20120819
